FAERS Safety Report 8212452-X (Version None)
Quarter: 2012Q1

REPORT INFORMATION
  Report Type: 
  Country: None (occurrence: None)
  Receive Date: 20120315
  Receipt Date: 20110610
  Transmission Date: 20120608
  Serious: Yes (Other)
  Sender: FDA-Public Use
  Company Number: US-GLAXOSMITHKLINE-A0932213A

PATIENT
  Age: 74 Year
  Sex: Female
  Weight: 54.4 kg

DRUGS (17)
  1. OXYGEN [Concomitant]
     Dosage: 6L SEE DOSAGE TEXT
  2. KLOR-CON [Concomitant]
     Dosage: 10MEQ AS DIRECTED
  3. IRON [Concomitant]
  4. CELEBREX [Concomitant]
     Dosage: 200MG PER DAY
  5. TRACLEER [Concomitant]
     Dosage: 1TAB TWICE PER DAY
  6. PREDNISONE TAB [Concomitant]
     Dosage: 10MG PER DAY
  7. FLOLAN [Suspect]
     Indication: PULMONARY ARTERIAL HYPERTENSION
     Route: 042
     Dates: start: 20061122
  8. WARFARIN SODIUM [Concomitant]
     Dosage: 4MG AS DIRECTED
     Route: 048
  9. VITAMIN D [Concomitant]
     Dosage: 50000UNIT WEEKLY
  10. PREMARIN [Concomitant]
     Dosage: .625MG PER DAY
  11. REVATIO [Concomitant]
     Dosage: 20MG THREE TIMES PER DAY
     Route: 048
  12. FUROSEMIDE [Concomitant]
     Dosage: 80MG PER DAY
  13. ALPRAZOLAM [Concomitant]
     Dosage: 1MG FOUR TIMES PER DAY
  14. CALCIUM [Concomitant]
     Dosage: 500MG PER DAY
  15. TYLENOL [Concomitant]
     Dosage: 325MG AS REQUIRED
  16. VICODIN ES [Concomitant]
  17. ALLOPURINOL [Concomitant]
     Dosage: 300MG PER DAY

REACTIONS (5)
  - DIZZINESS [None]
  - EPISTAXIS [None]
  - OEDEMA [None]
  - CARDIOGENIC SHOCK [None]
  - HEADACHE [None]
